FAERS Safety Report 13029644 (Version 1)
Quarter: 2016Q4

REPORT INFORMATION
  Report Type: Other
  Country: JP (occurrence: JP)
  Receive Date: 20161215
  Receipt Date: 20161215
  Transmission Date: 20170207
  Serious: Yes (Other)
  Sender: FDA-Public Use
  Company Number: JP-LUPIN PHARMACEUTICALS INC.-2016-05466

PATIENT
  Age: 77 Year
  Sex: Male

DRUGS (1)
  1. LOSARTAN POTASSIUM/HYDROCHLOROTHIAZIDE [Suspect]
     Active Substance: HYDROCHLOROTHIAZIDE\LOSARTAN POTASSIUM
     Indication: HYPERTENSION
     Route: 048

REACTIONS (2)
  - Enterocolitis [Recovering/Resolving]
  - Erythema [Recovered/Resolved]
